FAERS Safety Report 16960636 (Version 2)
Quarter: 2020Q1

REPORT INFORMATION
  Report Type: Spontaneous
  Country: FR (occurrence: FR)
  Receive Date: 20191025
  Receipt Date: 20200109
  Transmission Date: 20200409
  Serious: Yes (Death, Hospitalization, Other)
  Sender: FDA-Public Use
  Company Number: FR-AMGEN-FRASP2019177240

PATIENT
  Sex: Female

DRUGS (6)
  1. DOXORUBICINE [DOXORUBICIN] [Suspect]
     Active Substance: DOXORUBICIN
     Indication: PLASMA CELL MYELOMA
     Dosage: UNK
     Route: 065
     Dates: start: 20190418, end: 20190513
  2. VELCADE [Suspect]
     Active Substance: BORTEZOMIB
     Indication: PLASMA CELL MYELOMA
     Dosage: UNK
     Route: 065
     Dates: start: 20190418, end: 20190513
  3. CARFILZOMIB [Suspect]
     Active Substance: CARFILZOMIB
     Indication: PLASMA CELL MYELOMA
     Dosage: UNK
     Route: 065
     Dates: end: 20190517
  4. DARZALEX [Suspect]
     Active Substance: DARATUMUMAB
     Indication: PRODUCT USED FOR UNKNOWN INDICATION
     Dosage: UNK
     Route: 065
     Dates: end: 20190517
  5. DEXAMETHASONE. [Suspect]
     Active Substance: DEXAMETHASONE
     Indication: PLASMA CELL MYELOMA
     Dosage: UNK
     Route: 065
     Dates: start: 20190418, end: 20190513
  6. THALIDOMIDE [Suspect]
     Active Substance: THALIDOMIDE
     Indication: PLASMA CELL MYELOMA
     Dosage: UNK
     Route: 065
     Dates: start: 20190418, end: 20190513

REACTIONS (16)
  - Disease progression [Unknown]
  - Anxiety disorder [Unknown]
  - Cholestasis [Unknown]
  - Loss of personal independence in daily activities [Unknown]
  - Hepatocellular injury [Unknown]
  - Decubitus ulcer [Unknown]
  - Constipation [Unknown]
  - Death [Fatal]
  - Malnutrition [Unknown]
  - General physical health deterioration [Unknown]
  - Diarrhoea [Unknown]
  - Joint ankylosis [Unknown]
  - Body dysmorphic disorder [Unknown]
  - Dyspepsia [Unknown]
  - Hepatic cirrhosis [Unknown]
  - Sleep disorder [Unknown]

NARRATIVE: CASE EVENT DATE: 20190506
